FAERS Safety Report 8786322 (Version 1)
Quarter: 2012Q4

REPORT INFORMATION
  Report Type: 
  Country: JP (occurrence: JP)
  Receive Date: 20120914
  Receipt Date: 20120914
  Transmission Date: 20130627
  Serious: Yes (Death, Other)
  Sender: FDA-Public Use
  Company Number: JP-ROCHE-1124160

PATIENT
  Age: 77 Year
  Sex: Male

DRUGS (4)
  1. XELODA [Suspect]
     Indication: RECTAL CANCER RECURRENT
     Dosage: Day1-14 and three every weeks
     Route: 048
  2. XELODA [Suspect]
     Indication: RECTAL CANCER RECURRENT
     Dosage: Day1-14 and three every weeks
     Route: 048
  3. OXALIPLATIN [Concomitant]
     Indication: RECTAL CANCER RECURRENT
     Route: 041
  4. IRINOTECAN HYDROCHLORIDE [Concomitant]
     Indication: RECTAL CANCER RECURRENT
     Route: 041

REACTIONS (4)
  - Renal failure [Fatal]
  - Gastric haemorrhage [Unknown]
  - Intestinal obstruction [Unknown]
  - Haemoptysis [Unknown]
